FAERS Safety Report 9959594 (Version 1)
Quarter: 2014Q1

REPORT INFORMATION
  Report Type: Report from Study
  Country: US (occurrence: US)
  Receive Date: 20140305
  Receipt Date: 20140305
  Transmission Date: 20141002
  Serious: No
  Sender: FDA-Public Use
  Company Number: US-ABBVIE-13P-163-1105866-00

PATIENT
  Age: 45 Year
  Sex: Female

DRUGS (12)
  1. HUMIRA [Suspect]
     Indication: RHEUMATOID ARTHRITIS
     Dates: start: 20130328, end: 20130613
  2. CALCIUM [Concomitant]
     Indication: MINERAL SUPPLEMENTATION
  3. PLAQUENIL [Concomitant]
     Indication: PRODUCT USED FOR UNKNOWN INDICATION
  4. METHOTREXATE [Concomitant]
     Indication: PRODUCT USED FOR UNKNOWN INDICATION
  5. FOLIC ACID [Concomitant]
     Indication: PRODUCT USED FOR UNKNOWN INDICATION
  6. PRILOSEC [Concomitant]
     Indication: GASTROOESOPHAGEAL REFLUX DISEASE
  7. RESTASIS [Concomitant]
     Indication: DRY EYE
  8. SYSTANE [Concomitant]
     Indication: DRY EYE
  9. NORTRIPTYLINE [Concomitant]
     Indication: HEADACHE
  10. ^AN ALLERGY PILL^ [Concomitant]
     Indication: HYPERSENSITIVITY
  11. IRON [Concomitant]
     Indication: MINERAL SUPPLEMENTATION
  12. NADOLOL [Concomitant]
     Indication: HEADACHE

REACTIONS (4)
  - Fatigue [Not Recovered/Not Resolved]
  - Headache [Not Recovered/Not Resolved]
  - Pain [Not Recovered/Not Resolved]
  - Joint swelling [Not Recovered/Not Resolved]
